FAERS Safety Report 9397519 (Version 2)
Quarter: 2013Q3

REPORT INFORMATION
  Report Type: Spontaneous
  Country: DE (occurrence: DE)
  Receive Date: 20130712
  Receipt Date: 20130814
  Transmission Date: 20140515
  Serious: Yes (Other)
  Sender: FDA-Public Use
  Company Number: DE-AMGEN-DEUSP2013048018

PATIENT
  Age: 76 Year
  Sex: Female
  Weight: 54.3 kg

DRUGS (2)
  1. PROLIA [Suspect]
     Indication: OSTEOPOROSIS
     Dosage: UNK
     Route: 065
     Dates: start: 201106
  2. THYROXIN [Concomitant]
     Indication: HYPOTHYROIDISM
     Dosage: 75 MUG, QD
     Route: 048

REACTIONS (1)
  - Cellulitis [Recovered/Resolved]
